FAERS Safety Report 7585558-6 (Version None)
Quarter: 2011Q2

REPORT INFORMATION
  Report Type: 
  Country: None (occurrence: None)
  Receive Date: 20110624
  Receipt Date: 20110609
  Transmission Date: 20111010
  Serious: Yes (Other)
  Sender: FDA-Public Use
  Company Number: 2011MA006985

PATIENT
  Age: 9 Year
  Sex: Male

DRUGS (3)
  1. LEVETIRACETAM [Suspect]
     Indication: CONVULSION
     Dosage: 1000 MG; QD;
  2. CLOBAZAM [Concomitant]
  3. TOPIRAMATE [Concomitant]

REACTIONS (8)
  - CONDITION AGGRAVATED [None]
  - CONVULSION [None]
  - ABNORMAL BEHAVIOUR [None]
  - MENTAL RETARDATION [None]
  - EXPRESSIVE LANGUAGE DISORDER [None]
  - MYOCLONUS [None]
  - ELECTROENCEPHALOGRAM ABNORMAL [None]
  - ENCEPHALOPATHY [None]
